FAERS Safety Report 16789663 (Version 2)
Quarter: 2019Q3

REPORT INFORMATION
  Report Type: Spontaneous
  Country: NL (occurrence: NL)
  Receive Date: 20190910
  Receipt Date: 20190923
  Transmission Date: 20191005
  Serious: Yes (Hospitalization)
  Sender: FDA-Public Use
  Company Number: NL-TEVA-2019-NL-1103900

PATIENT
  Sex: Female
  Weight: 70 kg

DRUGS (11)
  1. MOMETASON FUROAAT ZALF 1MG/G [Concomitant]
     Dosage: 2 DD
  2. HYDROCORTISON CREME 10MG/G [Concomitant]
     Dosage: 2 DD
  3. DOXYCYCLINE 100MG [Concomitant]
     Active Substance: DOXYCYCLINE
     Dosage: 1 DD 1
  4. METRONIDAZOL CREME 10MG/G [Concomitant]
     Active Substance: METRONIDAZOLE
     Dosage: 2 DD
  5. CETOMACROGROL CREME MET 20% VASELINE [Concomitant]
  6. ACETYLCYSTE?NE 200MG [Concomitant]
  7. LEVOCETIRIZINE 5MG [Concomitant]
     Active Substance: LEVOCETIRIZINE
     Dosage: 3 DD 1
  8. EUTHYROX 75MCG [Concomitant]
     Dosage: 1 DD 1
  9. OMEPRAZOL TABLET 20MG [Concomitant]
     Dosage: 1 DD 1
  10. FUSIDINEZUUR CREME 20MG/G [Concomitant]
     Dosage: 2 DD
  11. NAPROXEN TABLET, 250 MG (MILLIGRAM) [Suspect]
     Active Substance: NAPROXEN
     Indication: ARTHRALGIA
     Dosage: 2X A DAY 1 PIECE
     Dates: start: 20190618, end: 20190702

REACTIONS (1)
  - Inappropriate antidiuretic hormone secretion [Recovered/Resolved]
